FAERS Safety Report 10427314 (Version 1)
Quarter: 2014Q3

REPORT INFORMATION
  Report Type: Spontaneous
  Country: US (occurrence: US)
  Receive Date: 20140903
  Receipt Date: 20140903
  Transmission Date: 20150326
  Serious: Yes (Other)
  Sender: FDA-Public Use
  Company Number: PHHY2014US106841

PATIENT
  Age: 38 Year
  Sex: Female

DRUGS (5)
  1. AZITHROMYCIN [Suspect]
     Active Substance: AZITHROMYCIN ANHYDROUS
     Indication: OPPORTUNISTIC INFECTION PROPHYLAXIS
  2. EMTRICITABINE [Suspect]
     Active Substance: EMTRICITABINE
     Indication: HIV INFECTION
  3. EFAVIRENZ [Suspect]
     Active Substance: EFAVIRENZ
     Indication: HIV INFECTION
  4. TENOFOVIR [Suspect]
     Active Substance: TENOFOVIR
     Indication: HIV INFECTION
  5. RALTEGRAVIR [Suspect]
     Active Substance: RALTEGRAVIR
     Indication: HIV INFECTION

REACTIONS (8)
  - Mycobacterium avium complex infection [Recovering/Resolving]
  - Dyspnoea [Recovered/Resolved]
  - Immune reconstitution inflammatory syndrome [Unknown]
  - Cough [Recovered/Resolved]
  - Tracheal mass [Recovering/Resolving]
  - Haemoptysis [Recovered/Resolved]
  - Excessive granulation tissue [Recovering/Resolving]
  - Lung infiltration [Recovering/Resolving]
